FAERS Safety Report 5706325-1 (Version None)
Quarter: 2008Q2

REPORT INFORMATION
  Report Type: 
  Country: None (occurrence: None)
  Receive Date: 20080411
  Receipt Date: 20080331
  Transmission Date: 20081010
  Serious: Yes (Life-Threatening, Hospitalization, Disabling)
  Sender: FDA-Public Use
  Company Number: 2008-174656-NL

PATIENT
  Age: 41 Year
  Sex: Male
  Weight: 65.8 kg

DRUGS (10)
  1. REMERON [Suspect]
     Indication: DEPRESSION
  2. AMBIEN [Suspect]
     Indication: INSOMNIA
     Dosage: DF ORAL, ONE OR TWO 5 MG/10 MG TABLETS
     Route: 048
     Dates: start: 20030101, end: 20050601
  3. ALCOHOL [Suspect]
     Dosage: DF, 12 OUNCES
  4. RETROVIR [Concomitant]
  5. VIDEX [Concomitant]
  6. SUSTIVA [Concomitant]
  7. BENADRYL [Concomitant]
  8. FLONASE [Concomitant]
  9. RITONAVIR [Concomitant]
  10. ACETAMINOPHEN AND HYDROCODONE BITARTRATE [Concomitant]

REACTIONS (23)
  - AMNESIA [None]
  - ANXIETY [None]
  - ARTHROSCOPY [None]
  - BALANCE DISORDER [None]
  - DEPRESSION [None]
  - DYSARTHRIA [None]
  - GENERAL PHYSICAL HEALTH DETERIORATION [None]
  - HEADACHE [None]
  - IMPAIRED DRIVING ABILITY [None]
  - INSOMNIA [None]
  - KNEE MENISCECTOMY [None]
  - LACRIMATION INCREASED [None]
  - MENTAL IMPAIRMENT [None]
  - MUSCULOSKELETAL DISCOMFORT [None]
  - OCULAR HYPERAEMIA [None]
  - PARTNER STRESS [None]
  - POISONING [None]
  - PYREXIA [None]
  - RASH [None]
  - ROAD TRAFFIC ACCIDENT [None]
  - SOMNAMBULISM [None]
  - SPINAL CORD INJURY [None]
  - STRESS [None]
